FAERS Safety Report 8619885-8 (Version None)
Quarter: 2012Q3

REPORT INFORMATION
  Report Type: 
  Country: None (occurrence: None)
  Receive Date: 20120824
  Receipt Date: 20120817
  Transmission Date: 20120928
  Serious: Yes (Hospitalization, Other)
  Sender: FDA-Public Use
  Company Number: US-B.I. PHARMACEUTICALS,INC./RIDGEFIELD-2012-BP-19953BP

PATIENT
  Sex: Female

DRUGS (13)
  1. CLORAZEPATE DIPOTASSIUM [Concomitant]
     Indication: ANXIETY
  2. METFORMIN HCL [Concomitant]
     Indication: DIABETES MELLITUS
     Dosage: 2000 MG
     Route: 048
  3. LEVOTHYROXINE SODIUM [Concomitant]
     Indication: HYPOTHYROIDISM
     Dosage: 25 MCG
     Route: 048
     Dates: end: 20120718
  4. PRADAXA [Suspect]
     Indication: ATRIAL FIBRILLATION
     Dosage: 300 MG
     Route: 048
     Dates: start: 20111001
  5. ASPIRIN [Concomitant]
     Dosage: 81 MG
     Route: 048
  6. VITAMIN D [Concomitant]
  7. LASIX [Concomitant]
     Indication: ELECTROLYTE IMBALANCE
     Dosage: 60 MG
     Route: 048
  8. MACROBID [Concomitant]
     Indication: URINARY TRACT INFECTION
     Route: 048
  9. METOPROLOL TARTRATE [Concomitant]
     Indication: HEART RATE INCREASED
     Route: 048
  10. CALCIUM CARBONATE [Concomitant]
     Indication: GASTROOESOPHAGEAL REFLUX DISEASE
     Route: 048
  11. CLORAZEPATE DIPOTASSIUM [Concomitant]
     Indication: NERVOUSNESS
     Dosage: 7.5 MG
     Route: 048
  12. FERROUS SULFATE TAB [Concomitant]
     Indication: BLOOD IRON
  13. LOVAZA [Concomitant]
     Indication: BLOOD CHOLESTEROL
     Route: 048

REACTIONS (8)
  - HYPOTHYROIDISM [None]
  - OEDEMA [None]
  - ASTHENIA [None]
  - CARDIAC FAILURE CONGESTIVE [None]
  - CONTUSION [None]
  - HEART RATE INCREASED [None]
  - ANAEMIA [None]
  - GASTROOESOPHAGEAL REFLUX DISEASE [None]
